FAERS Safety Report 20638989 (Version 1)
Quarter: 2022Q1

REPORT INFORMATION
  Report Type: Spontaneous
  Country: IT (occurrence: IT)
  Receive Date: 20220326
  Receipt Date: 20220326
  Transmission Date: 20220423
  Serious: Yes (Hospitalization)
  Sender: FDA-Public Use
  Company Number: IT-STRIDES ARCOLAB LIMITED-2022SP003088

PATIENT

DRUGS (2)
  1. TACROLIMUS [Suspect]
     Active Substance: TACROLIMUS
     Indication: Liver transplant
     Dosage: 0.05-0.1 MG/KG WITH A TARGET BLOOD LEVEL OF 8-10 NG/ML
     Route: 065
  2. BASILIXIMAB [Suspect]
     Active Substance: BASILIXIMAB
     Indication: Liver transplant
     Dosage: 20 MILLIGRAM ON DAY 0 AND POST-OPERATIVE DAY 4
     Route: 042

REACTIONS (2)
  - Osmotic demyelination syndrome [Unknown]
  - Toxic encephalopathy [Unknown]
